FAERS Safety Report 4294122-6 (Version None)
Quarter: 2004Q1

REPORT INFORMATION
  Report Type: 
  Country: None (occurrence: None)
  Receive Date: 20040213
  Receipt Date: 20040202
  Transmission Date: 20041129
  Serious: Yes (Hospitalization)
  Sender: FDA-Public Use
  Company Number: FR-BRISTOL-MYERS SQUIBB COMPANY-12493219

PATIENT
  Age: 1 Day
  Sex: Male

DRUGS (2)
  1. VIDEX [Suspect]
     Route: 048
  2. COMBIVIR [Suspect]
     Route: 048

REACTIONS (3)
  - GROWTH RETARDATION [None]
  - HYPOTONIA [None]
  - LATE DEVELOPER [None]
